FAERS Safety Report 7049432-6 (Version None)
Quarter: 2010Q4

REPORT INFORMATION
  Report Type: 
  Country: None (occurrence: None)
  Receive Date: 20101018
  Receipt Date: 20101006
  Transmission Date: 20110411
  Serious: Yes (Hospitalization)
  Sender: FDA-Public Use
  Company Number: ES-ACTELION-A-CH2010-40421

PATIENT
  Age: 58 Year
  Sex: Male

DRUGS (4)
  1. TRACLEER [Suspect]
     Indication: PULMONARY HYPERTENSION
     Dosage: 125 MG, BID
     Route: 048
     Dates: start: 20090424, end: 20100927
  2. FLUCONAZOLE [Suspect]
     Dosage: 200 MG, OD
     Route: 048
     Dates: start: 20100701, end: 20100801
  3. ACENOCOUMAROL [Suspect]
     Dosage: 2 MG, OD
     Route: 048
     Dates: start: 20060101, end: 20100907
  4. ZOCOR [Suspect]
     Dosage: 10 MG, OD
     Route: 048
     Dates: start: 20060101, end: 20100907

REACTIONS (6)
  - ALANINE AMINOTRANSFERASE INCREASED [None]
  - BLOOD ALKALINE PHOSPHATASE INCREASED [None]
  - GAMMA-GLUTAMYLTRANSFERASE INCREASED [None]
  - GENITAL INFECTION FUNGAL [None]
  - HEPATITIS [None]
  - HYPERBILIRUBINAEMIA [None]
